FAERS Safety Report 6266931 (Version 3)
Quarter: 2021Q2

REPORT INFORMATION
  Report Type: Report from Study
  Country: GB (occurrence: KR)
  Receive Date: 20070321
  Receipt Date: 20210527
  Transmission Date: 20210717
  Serious: Yes (Death, Hospitalization, Other)
  Sender: FDA-Public Use
  Company Number: KR-GILEAD-2007-0011699

PATIENT
  Age: 63 Year
  Sex: Male

DRUGS (6)
  1. LAMIVUDINE. [Concomitant]
     Active Substance: LAMIVUDINE
     Dates: start: 20010425, end: 20060116
  2. TAUROURSODESOXYCHOLIC ACID [Concomitant]
     Dates: start: 20020215, end: 20060116
  3. LACTULOSE. [Concomitant]
     Active Substance: LACTULOSE
  4. SPIRONOLACTONE. [Concomitant]
     Active Substance: SPIRONOLACTONE
     Dates: start: 20000818, end: 20060218
  5. HEPSERA [Suspect]
     Active Substance: ADEFOVIR DIPIVOXIL
     Indication: PRODUCT USED FOR UNKNOWN INDICATION
     Dosage: 10 MG
     Route: 048
     Dates: start: 20051201, end: 20060302
  6. ADEFOVIR DIPIVOXIL. [Suspect]
     Active Substance: ADEFOVIR DIPIVOXIL
     Indication: HEPATITIS B
     Route: 048
     Dates: start: 20051201, end: 20060302

REACTIONS (7)
  - Gastric ulcer haemorrhage [Recovered/Resolved]
  - Gastric ulcer haemorrhage [Recovered/Resolved]
  - Hepatic cirrhosis [Unknown]
  - Melaena [Recovered/Resolved]
  - Dyspnoea [Recovered/Resolved]
  - Hepatic failure [Fatal]
  - Bleeding varicose vein [Unknown]

NARRATIVE: CASE EVENT DATE: 20051215
